FAERS Safety Report 6065697-1 (Version None)
Quarter: 2009Q1

REPORT INFORMATION
  Report Type: 
  Country: None (occurrence: None)
  Receive Date: 20090202
  Receipt Date: 20090121
  Transmission Date: 20090719
  Serious: Yes (Other)
  Sender: FDA-Public Use
  Company Number: CHPA2009GB00796

PATIENT
  Sex: Male

DRUGS (1)
  1. HYOSCINE HBR HYT [Suspect]
     Dosage: TRANSDERMAL
     Route: 062
     Dates: start: 20030101

REACTIONS (6)
  - DRY EYE [None]
  - EPILEPSY [None]
  - EYE SWELLING [None]
  - HALLUCINATION [None]
  - KERATITIS [None]
  - URINARY TRACT INFECTION [None]
